FAERS Safety Report 13059545 (Version 1)
Quarter: 2016Q4

REPORT INFORMATION
  Report Type: Spontaneous
  Country: US (occurrence: US)
  Receive Date: 20161223
  Receipt Date: 20161223
  Transmission Date: 20170207
  Serious: No
  Sender: FDA-Public Use
  Company Number: US-TEVA-723126ACC

PATIENT
  Sex: Female

DRUGS (1)
  1. COPAXONE [Suspect]
     Active Substance: GLATIRAMER ACETATE
     Indication: MULTIPLE SCLEROSIS
     Dosage: 17.1429 MILLIGRAM DAILY;
     Route: 058
     Dates: start: 201404

REACTIONS (5)
  - Alopecia [Unknown]
  - Drug dose omission [Unknown]
  - Memory impairment [Unknown]
  - Injection site reaction [Unknown]
  - Fall [Unknown]

NARRATIVE: CASE EVENT DATE: 2016
